FAERS Safety Report 5663902-4 (Version None)
Quarter: 2008Q1

REPORT INFORMATION
  Report Type: 
  Country: None (occurrence: None)
  Receive Date: 20080311
  Receipt Date: 20080303
  Transmission Date: 20080703
  Serious: Yes (Death, Disabling, Other)
  Sender: FDA-Public Use
  Company Number: 2008SP002192

PATIENT
  Age: 67 Year
  Sex: Male
  Weight: 76 kg

DRUGS (8)
  1. TEMOZOLOMIDE [Suspect]
     Indication: GLIOBLASTOMA
     Dosage: QD;PO, 190 QD;PO, 140 MG
     Route: 048
     Dates: start: 20070916, end: 20071006
  2. TEMOZOLOMIDE [Suspect]
     Indication: GLIOBLASTOMA
     Dosage: QD;PO, 190 QD;PO, 140 MG
     Route: 048
     Dates: start: 20070701
  3. TEMOZOLOMIDE [Suspect]
     Indication: GLIOBLASTOMA
     Dosage: QD;PO, 190 QD;PO, 140 MG
     Route: 048
     Dates: start: 20071109
  4. TEMOZOLOMIDE [Suspect]
     Indication: GLIOBLASTOMA
     Dosage: QD;PO, 190 QD;PO, 140 MG
     Route: 048
     Dates: start: 20071111
  5. CONVERTIN [Concomitant]
  6. GLUCOPHAGE [Concomitant]
  7. GLIBETIC [Concomitant]
  8. EPANUTIN [Concomitant]

REACTIONS (6)
  - ANTICONVULSANT DRUG LEVEL BELOW THERAPEUTIC [None]
  - CONVULSION [None]
  - GLIOBLASTOMA [None]
  - MALIGNANT NEOPLASM PROGRESSION [None]
  - SEPSIS [None]
  - THROMBOCYTOPENIA [None]
